FAERS Safety Report 7790899-3 (Version None)
Quarter: 2011Q3

REPORT INFORMATION
  Report Type: 
  Country: None (occurrence: None)
  Receive Date: 20110930
  Receipt Date: 20110921
  Transmission Date: 20111222
  Serious: Yes (Hospitalization)
  Sender: FDA-Public Use
  Company Number: US-ASTRAZENECA-2011SE56630

PATIENT
  Age: 55 Year
  Sex: Male
  Weight: 108.9 kg

DRUGS (3)
  1. SEROQUEL [Suspect]
     Dosage: THREE TIMES A DAY, TOTAL DAILY DOSAGE 300 MG
     Route: 048
     Dates: start: 20090101
  2. SEROQUEL [Suspect]
     Indication: BIPOLAR DISORDER
     Dosage: THREE TIMES A DAY, TOTAL DAILY DOSAGE 900 MG
     Route: 048
     Dates: start: 19990101, end: 20090101
  3. SYNTHROID [Concomitant]
     Indication: HYPOTHYROIDISM
     Route: 048
     Dates: start: 19910101

REACTIONS (1)
  - NEOPLASM MALIGNANT [None]
